FAERS Safety Report 22060288 (Version 1)
Quarter: 2023Q1

REPORT INFORMATION
  Report Type: Spontaneous
  Country: US (occurrence: US)
  Receive Date: 20230303
  Receipt Date: 20230303
  Transmission Date: 20230418
  Serious: No
  Sender: FDA-Public Use
  Company Number: US-VYERA PHARMACEUTICALS, LLC-2023VYE00001

PATIENT
  Age: 53 Year
  Sex: Female
  Weight: 64.399 kg

DRUGS (2)
  1. DARAPRIM [Suspect]
     Active Substance: PYRIMETHAMINE
     Indication: Eye infection toxoplasmal
     Dosage: 25 MG, 2X/DAY
     Route: 048
     Dates: start: 20221228
  2. DARAPRIM [Suspect]
     Active Substance: PYRIMETHAMINE
     Dosage: 25 MG, 2X/DAY
     Route: 048
     Dates: start: 20221228

REACTIONS (5)
  - Headache [Recovering/Resolving]
  - Increased upper airway secretion [Not Recovered/Not Resolved]
  - Throat clearing [Not Recovered/Not Resolved]
  - Pulmonary congestion [Not Recovered/Not Resolved]
  - Off label use [Not Recovered/Not Resolved]

NARRATIVE: CASE EVENT DATE: 20221201
